FAERS Safety Report 5389343-5 (Version None)
Quarter: 2007Q3

REPORT INFORMATION
  Report Type: 
  Country: None (occurrence: None)
  Receive Date: 20070713
  Receipt Date: 20070713
  Transmission Date: 20080115
  Serious: Yes (Other)
  Sender: FDA-Public Use
  Company Number: None

PATIENT
  Age: 69 Year
  Sex: Female
  Weight: 50.8029 kg

DRUGS (1)
  1. BUDEPRION XL 300 MG. TEVA [Suspect]
     Indication: DEPRESSION
     Dosage: 300 MG. 1 X A DAY
     Dates: start: 20070505, end: 20070711

REACTIONS (2)
  - DRUG INEFFECTIVE [None]
  - THERAPEUTIC RESPONSE UNEXPECTED WITH DRUG SUBSTITUTION [None]
